FAERS Safety Report 14450804 (Version 1)
Quarter: 2018Q1

REPORT INFORMATION
  Report Type: Spontaneous
  Country: US (occurrence: US)
  Receive Date: 20180126
  Receipt Date: 20180126
  Transmission Date: 20180509
  Serious: Yes (Hospitalization)
  Sender: FDA-Public Use
  Company Number: None

PATIENT
  Age: 28 Year
  Sex: Female
  Weight: 60.75 kg

DRUGS (5)
  1. SPIRONOLACTONE. [Concomitant]
     Active Substance: SPIRONOLACTONE
  2. METHYLPHENIDATE. [Suspect]
     Active Substance: METHYLPHENIDATE
     Indication: ATTENTION DEFICIT/HYPERACTIVITY DISORDER
     Dosage: ?          QUANTITY:1 TABLET(S);?
     Route: 048
     Dates: start: 20170415, end: 20170415
  3. METHYLPHENIDATE ER [Suspect]
     Active Substance: METHYLPHENIDATE
     Indication: ATTENTION DEFICIT/HYPERACTIVITY DISORDER
     Dosage: ?          QUANTITY:1 TABLET(S);?
     Route: 048
     Dates: start: 20180112, end: 20180126
  4. ESTRADIOL. [Concomitant]
     Active Substance: ESTRADIOL
  5. VITAFUSION WOMEN^S ADULT GUMMY VITAMIN [Concomitant]

REACTIONS (22)
  - Abdominal discomfort [None]
  - Dyspnoea [None]
  - Tremor [None]
  - Therapy change [None]
  - Headache [None]
  - Flushing [None]
  - Palpitations [None]
  - Anger [None]
  - Oropharyngeal pain [None]
  - Hypoaesthesia [None]
  - Product quality issue [None]
  - Disturbance in attention [None]
  - Euphoric mood [None]
  - Product substitution issue [None]
  - Crying [None]
  - Panic attack [None]
  - Pyrexia [None]
  - Feeling abnormal [None]
  - Anxiety [None]
  - Rhinorrhoea [None]
  - Drug tolerance [None]
  - Middle insomnia [None]
